FAERS Safety Report 7774237-8 (Version None)
Quarter: 2011Q3

REPORT INFORMATION
  Report Type: 
  Country: None (occurrence: None)
  Receive Date: 20110923
  Receipt Date: 20110916
  Transmission Date: 20111222
  Serious: Yes (Death)
  Sender: FDA-Public Use
  Company Number: CN-ASTELLAS-2011JP006592

PATIENT
  Age: 34 Year
  Sex: Male

DRUGS (9)
  1. MYCOPHENOLATE MOFETIL [Suspect]
     Indication: IMMUNOSUPPRESSANT DRUG THERAPY
     Dosage: 0.75 G, Q12 HOURS
     Route: 065
  2. PREDNISOLONE [Suspect]
     Dosage: 240 MG, UNKNOWN/D
     Route: 065
  3. PREDNISOLONE [Suspect]
     Indication: IMMUNOSUPPRESSANT DRUG THERAPY
     Dosage: 400 MG, UNKNOWN/D
     Route: 065
  4. PREDNISOLONE [Suspect]
     Dosage: 30 MG, UNKNOWN/D
     Route: 065
  5. TACROLIMUS [Suspect]
     Dosage: 1.5 MG, Q12 HOURS
     Route: 048
  6. TACROLIMUS [Suspect]
     Indication: IMMUNOSUPPRESSANT DRUG THERAPY
     Dosage: 2 MG, Q12 HOURS
     Route: 048
  7. TACROLIMUS [Suspect]
     Dosage: 2.5 MG, Q12 HOURS
     Route: 048
  8. PREDNISOLONE [Suspect]
     Dosage: 120 MG, UNKNOWN/D
     Route: 065
  9. PREDNISOLONE [Suspect]
     Dosage: 60 MG, UNKNOWN/D
     Route: 065

REACTIONS (1)
  - BILE DUCT CANCER RECURRENT [None]
